FAERS Safety Report 9841441 (Version 1)
Quarter: 2014Q1

REPORT INFORMATION
  Report Type: Spontaneous
  Country: US (occurrence: None)
  Receive Date: 20140123
  Receipt Date: 20140123
  Transmission Date: 20141002
  Serious: Yes (Other)
  Sender: FDA-Public Use
  Company Number: None

PATIENT
  Age: 17 Year
  Sex: Female

DRUGS (1)
  1. MONO-LINYAH [Suspect]
     Indication: CONTRACEPTION
     Dosage: 1 TABLET QD ORAL
     Route: 048
     Dates: start: 20130721, end: 20131201

REACTIONS (3)
  - Muscle spasms [None]
  - Metrorrhagia [None]
  - Product substitution issue [None]
